FAERS Safety Report 4902280-2 (Version None)
Quarter: 2006Q1

REPORT INFORMATION
  Report Type: 
  Country: None (occurrence: None)
  Receive Date: 20060207
  Receipt Date: 20060127
  Transmission Date: 20060701
  Serious: Yes (Hospitalization)
  Sender: FDA-Public Use
  Company Number: US-JNJFOC-20060106147

PATIENT
  Sex: Male

DRUGS (3)
  1. REMICADE [Suspect]
     Indication: CROHN'S DISEASE
     Route: 042
  2. SUDAFED 12 HOUR [Concomitant]
  3. ACETAMINOPHEN [Concomitant]
     Route: 048

REACTIONS (8)
  - AURICULAR SWELLING [None]
  - DYSPHAGIA [None]
  - EYE PRURITUS [None]
  - HEPATIC ENZYME INCREASED [None]
  - NASOPHARYNGITIS [None]
  - PHARYNGEAL OEDEMA [None]
  - SWOLLEN TONGUE [None]
  - TONGUE DISORDER [None]
